FAERS Safety Report 4866159-7 (Version None)
Quarter: 2005Q4

REPORT INFORMATION
  Report Type: 
  Country: None (occurrence: None)
  Receive Date: 20051227
  Receipt Date: 20051221
  Transmission Date: 20060501
  Serious: Yes (Hospitalization)
  Sender: FDA-Public Use
  Company Number: PHEH2005US13747

PATIENT
  Age: 22 Year
  Sex: Female

DRUGS (9)
  1. TRILEPTAL [Suspect]
     Indication: BIPOLAR DISORDER
     Dates: start: 20030101
  2. TRILEPTAL [Suspect]
     Dosage: 600 MG, BID
  3. TRILEPTAL [Suspect]
     Dosage: 1500 MG, QD
     Dates: start: 20051001
  4. TRILEPTAL [Suspect]
     Dosage: 600 MG, QHS
  5. TRILEPTAL [Suspect]
     Dosage: 300 MG, QHS
     Dates: start: 20051219
  6. TRAZODONE [Concomitant]
     Indication: INSOMNIA
     Dosage: UNK, PRN
  7. ATENOLOL [Concomitant]
     Indication: HYPERTENSION
  8. LISINOPRIL [Concomitant]
     Indication: HYPERTENSION
  9. ORTHO EVRA [Concomitant]
     Indication: CONTRACEPTION

REACTIONS (4)
  - GALLBLADDER OPERATION [None]
  - LIVER DISORDER [None]
  - NAUSEA [None]
  - VOMITING [None]
